FAERS Safety Report 8960412 (Version 2)
Quarter: 2012Q4

REPORT INFORMATION
  Report Type: 
  Country: US (occurrence: US)
  Receive Date: 20121211
  Receipt Date: 20121213
  Transmission Date: 20130627
  Serious: Yes (Other)
  Sender: FDA-Public Use
  Company Number: US-PFIZER INC-2012311314

PATIENT
  Sex: Male

DRUGS (1)
  1. GEODON [Suspect]
     Dosage: UNK

REACTIONS (9)
  - Psychotic disorder [Unknown]
  - Illusion [Unknown]
  - Obsessive thoughts [Unknown]
  - Hallucination, visual [Unknown]
  - Paranoia [Unknown]
  - Asthenia [Unknown]
  - Nervousness [Unknown]
  - Anxiety [Unknown]
  - Fatigue [Unknown]
